FAERS Safety Report 5596240-9 (Version None)
Quarter: 2007Q4

REPORT INFORMATION
  Report Type: 
  Country: None (occurrence: None)
  Receive Date: 20071218
  Receipt Date: 20070702
  Transmission Date: 20080405
  Serious: Yes (Hospitalization, Other)
  Sender: FDA-Public Use
  Company Number: 2006071529

PATIENT
  Age: 72 Year
  Sex: Male
  Weight: 98 kg

DRUGS (5)
  1. BEXTRA [Suspect]
     Indication: PAIN
     Dosage: 10 MG (10 MG,1 IN 1 D),ORAL
     Route: 048
     Dates: start: 20041012
  2. VIOXX [Suspect]
     Indication: ARTHRITIS
     Dosage: 25 MG (1 D),ORAL
     Route: 048
     Dates: start: 20030605, end: 20040930
  3. DURAGESIC-100 [Concomitant]
  4. HYDROCODONE (HYDROCODONE) [Concomitant]
  5. OXYCODONE HCL [Concomitant]

REACTIONS (1)
  - MYOCARDIAL INFARCTION [None]
